FAERS Safety Report 5869297-5 (Version None)
Quarter: 2008Q3

REPORT INFORMATION
  Report Type: 
  Country: None (occurrence: None)
  Receive Date: 20080903
  Receipt Date: 20080827
  Transmission Date: 20090109
  Serious: Yes (Hospitalization)
  Sender: FDA-Public Use
  Company Number: DE-GILEAD-2008-0016258

PATIENT
  Sex: Male
  Weight: 74 kg

DRUGS (3)
  1. ATRIPLA [Suspect]
     Indication: HIV INFECTION
     Route: 048
     Dates: start: 20080219, end: 20080506
  2. TRUVADA [Suspect]
     Indication: HIV INFECTION
     Dates: start: 20070101, end: 20080218
  3. SUSTIVA [Concomitant]
     Indication: HIV INFECTION
     Dates: start: 20070101, end: 20080218

REACTIONS (5)
  - DEPRESSION [None]
  - DIARRHOEA [None]
  - LACTOSE INTOLERANCE [None]
  - PERSONALITY CHANGE [None]
  - SUICIDAL IDEATION [None]
